FAERS Safety Report 6842736-9 (Version None)
Quarter: 2010Q3

REPORT INFORMATION
  Report Type: 
  Country: None (occurrence: None)
  Receive Date: 20100709
  Receipt Date: 20100623
  Transmission Date: 20110219
  Serious: Yes (Life-Threatening, Hospitalization, Other)
  Sender: FDA-Public Use
  Company Number: GB-ACCORD-005360

PATIENT
  Age: 52 Year
  Sex: Male

DRUGS (5)
  1. SIMVASTATIN [Suspect]
     Indication: PRODUCT USED FOR UNKNOWN INDICATION
     Dosage: 40.00-MG-1.00PER-1.0DAYS / ORAL
     Route: 048
  2. FUSIDIN(FUSIDIN) [Suspect]
     Indication: LOCALISED INFECTION
     Dosage: 500.00-MG-3.00PER-1.0DAYS
  3. AMLODIPINE [Concomitant]
  4. FLOXACILLIN(FLOXACILLIN) [Concomitant]
  5. HUMALOG MIX 25(HUMALOG MIX 25) [Concomitant]

REACTIONS (9)
  - ALANINE AMINOTRANSFERASE INCREASED [None]
  - ASPARTATE AMINOTRANSFERASE INCREASED [None]
  - DRUG INTERACTION [None]
  - HAEMODIALYSIS [None]
  - LOCALISED INFECTION [None]
  - QUADRIPARESIS [None]
  - RENAL FAILURE [None]
  - RESPIRATORY DISORDER [None]
  - RHABDOMYOLYSIS [None]
